FAERS Safety Report 9299228 (Version 4)
Quarter: 2014Q1

REPORT INFORMATION
  Report Type: Spontaneous
  Country: US (occurrence: US)
  Receive Date: 20130520
  Receipt Date: 20140220
  Transmission Date: 20141002
  Serious: Yes (Hospitalization, Other)
  Sender: FDA-Public Use
  Company Number: US-009507513-1305USA010619

PATIENT
  Sex: Male
  Weight: 97.96 kg

DRUGS (2)
  1. PROPECIA [Suspect]
     Indication: ALOPECIA
     Dosage: 1 MG, QD
     Route: 048
     Dates: start: 1999
  2. FINASTERIDE [Suspect]
     Dosage: 1 MG, UNK

REACTIONS (30)
  - Surgery [Unknown]
  - Insomnia [Unknown]
  - Hypertension [Unknown]
  - Gastrooesophageal reflux disease [Unknown]
  - Hepatic infection [Unknown]
  - Ulcer [Unknown]
  - Thrombosis [Unknown]
  - Paronychia [Unknown]
  - Seasonal affective disorder [Unknown]
  - Anxiety [Unknown]
  - Pain [Unknown]
  - Nausea [Unknown]
  - Vomiting [Unknown]
  - Blood pressure increased [Unknown]
  - Sexual dysfunction [Not Recovered/Not Resolved]
  - Erectile dysfunction [Not Recovered/Not Resolved]
  - Libido decreased [Unknown]
  - Depression [Unknown]
  - Semen volume decreased [Unknown]
  - Abdominal discomfort [Unknown]
  - Adverse drug reaction [Unknown]
  - Epistaxis [Unknown]
  - Sinusitis [Unknown]
  - Cystitis [Unknown]
  - Vision blurred [Recovered/Resolved]
  - Haematemesis [Unknown]
  - Headache [Unknown]
  - Dysuria [Unknown]
  - Genital pain [Unknown]
  - Blood pressure increased [Unknown]
